FAERS Safety Report 8407489-1 (Version None)
Quarter: 2012Q2

REPORT INFORMATION
  Report Type: 
  Country: None (occurrence: None)
  Receive Date: 20120604
  Receipt Date: 20120529
  Transmission Date: 20120825
  Serious: Yes (Other)
  Sender: FDA-Public Use
  Company Number: US-PFIZER INC-2012129233

PATIENT
  Sex: Female
  Weight: 56.236 kg

DRUGS (3)
  1. IBUPROFEN (ADVIL) [Suspect]
     Dosage: UNK
     Route: 048
     Dates: end: 20110501
  2. IBUPROFEN (ADVIL) [Interacting]
     Dosage: UNK
     Route: 048
  3. LITHIUM [Interacting]
     Indication: BIPOLAR DISORDER
     Dosage: UNK

REACTIONS (6)
  - TOXICITY TO VARIOUS AGENTS [None]
  - MANIA [None]
  - ANTIPSYCHOTIC DRUG LEVEL INCREASED [None]
  - NEOPLASM MALIGNANT [None]
  - DRUG LEVEL INCREASED [None]
  - DRUG INTERACTION [None]
